FAERS Safety Report 5495026-3 (Version None)
Quarter: 2007Q4

REPORT INFORMATION
  Report Type: 
  Country: None (occurrence: None)
  Receive Date: 20071024
  Receipt Date: 20071010
  Transmission Date: 20080405
  Serious: Yes (Hospitalization, Other)
  Sender: FDA-Public Use
  Company Number: CA-SHR-CA-2004-034168

PATIENT
  Age: 17 Month
  Sex: Female

DRUGS (1)
  1. BETASERON [Suspect]

REACTIONS (5)
  - CONVULSION [None]
  - DRUG EXPOSURE DURING PREGNANCY [None]
  - NUCLEAR MAGNETIC RESONANCE IMAGING BRAIN ABNORMAL [None]
  - RASH MACULAR [None]
  - VIRAL INFECTION [None]
